FAERS Safety Report 5109384-2 (Version None)
Quarter: 2006Q3

REPORT INFORMATION
  Report Type: 
  Country: None (occurrence: None)
  Receive Date: 20060918
  Receipt Date: 20060905
  Transmission Date: 20061208
  Serious: Yes (Hospitalization)
  Sender: FDA-Public Use
  Company Number: 2006BI009753

PATIENT
  Age: 53 Year
  Sex: Female

DRUGS (8)
  1. AVONEX [Suspect]
     Indication: MULTIPLE SCLEROSIS
     Dates: start: 19970101
  2. AVONEX [Suspect]
     Indication: MULTIPLE SCLEROSIS
     Dosage: 30 UG; QW; IM
     Route: 030
     Dates: end: 20060530
  3. DITROPAN [Concomitant]
  4. BACLOFEN [Concomitant]
  5. ACTONEL [Concomitant]
  6. TIZANIDINE HCL [Concomitant]
  7. CLONAZEPAM [Concomitant]
  8. BENADRYL [Concomitant]

REACTIONS (7)
  - HYPOTHERMIA [None]
  - MYOCARDIAL INFARCTION [None]
  - PNEUMONIA [None]
  - SPUTUM CULTURE POSITIVE [None]
  - STAPHYLOCOCCAL INFECTION [None]
  - THROMBOCYTOPENIA [None]
  - UROSEPSIS [None]
